FAERS Safety Report 5704987-6 (Version None)
Quarter: 2008Q2

REPORT INFORMATION
  Report Type: 
  Country: None (occurrence: None)
  Receive Date: 20080414
  Receipt Date: 20080410
  Transmission Date: 20081010
  Serious: Yes (Other)
  Sender: FDA-Public Use
  Company Number: FR-BOEHRINGER INGELHEIM GMBH, GERMANY-2008-DE-02185GD

PATIENT
  Sex: Male

DRUGS (8)
  1. PREDNISONE [Suspect]
     Indication: WEGENER'S GRANULOMATOSIS
     Route: 048
     Dates: start: 19910101
  2. PREDNISONE [Suspect]
     Route: 048
     Dates: start: 19950401
  3. PREDNISONE [Suspect]
     Dosage: 1 MG/KG
     Route: 048
     Dates: start: 19970901, end: 20040201
  4. METHYLPREDNISOLONE [Suspect]
     Indication: WEGENER'S GRANULOMATOSIS
     Dosage: 15 MG/KG
     Dates: start: 19970901
  5. IMMUNOGLOBULINS [Suspect]
     Indication: WEGENER'S GRANULOMATOSIS
     Route: 042
     Dates: start: 19970901, end: 19971201
  6. AZATHIOPRINE [Suspect]
     Indication: WEGENER'S GRANULOMATOSIS
     Dates: start: 19971201, end: 19990101
  7. MYCOPHENOLATE MOFETIL [Suspect]
     Indication: WEGENER'S GRANULOMATOSIS
     Dosage: 2 G THEN 3 G
     Dates: start: 19990101
  8. METHOTREXATE [Suspect]
     Indication: WEGENER'S GRANULOMATOSIS
     Dates: start: 20000101

REACTIONS (6)
  - ATRIOVENTRICULAR BLOCK FIRST DEGREE [None]
  - BUNDLE BRANCH BLOCK LEFT [None]
  - BUNDLE BRANCH BLOCK RIGHT [None]
  - DRUG INEFFECTIVE [None]
  - PYODERMA GANGRENOSUM [None]
  - SYNCOPE [None]
